FAERS Safety Report 7959166-9 (Version None)
Quarter: 2011Q4

REPORT INFORMATION
  Report Type: 
  Country: None (occurrence: None)
  Receive Date: 20111206
  Receipt Date: 20110610
  Transmission Date: 20120403
  Serious: No
  Sender: FDA-Public Use
  Company Number: US-ABBOTT-11P-163-0713957-00

PATIENT
  Sex: Female

DRUGS (1)
  1. OMNICEF [Suspect]
     Indication: SINUSITIS
     Dates: start: 20110304, end: 20110318

REACTIONS (1)
  - ARTHRALGIA [None]
